FAERS Safety Report 5065178-8 (Version None)
Quarter: 2006Q3

REPORT INFORMATION
  Report Type: 
  Country: None (occurrence: None)
  Receive Date: 20060706
  Receipt Date: 20051020
  Transmission Date: 20061208
  Serious: Yes (Other)
  Sender: FDA-Public Use
  Company Number: 21621

PATIENT
  Sex: Male
  Weight: 86.1834 kg

DRUGS (1)
  1. MIDAZOLAM HCL [Suspect]
     Indication: SURGERY
     Dates: start: 20040301

REACTIONS (2)
  - CARDIAC ARREST [None]
  - HYPERSENSITIVITY [None]
